FAERS Safety Report 4497174-3 (Version None)
Quarter: 2004Q4

REPORT INFORMATION
  Report Type: 
  Country: None (occurrence: None)
  Receive Date: 20041110
  Receipt Date: 20040913
  Transmission Date: 20050328
  Serious: Yes (Disabling)
  Sender: FDA-Public Use
  Company Number: 200412916JP

PATIENT
  Age: 32 Year
  Sex: Female

DRUGS (2)
  1. ALLEGRA [Suspect]
     Indication: URTICARIA
     Dates: start: 20040911
  2. NIPOLAZIN [Concomitant]
     Indication: URTICARIA
     Dates: start: 20040911

REACTIONS (4)
  - EYE SWELLING [None]
  - FACE OEDEMA [None]
  - SWELLING FACE [None]
  - URTICARIA [None]
